FAERS Safety Report 15999894 (Version 6)
Quarter: 2021Q4

REPORT INFORMATION
  Report Type: Report from Study
  Country: IT (occurrence: IT)
  Receive Date: 20190225
  Receipt Date: 20211108
  Transmission Date: 20220303
  Serious: Yes (Death, Hospitalization)
  Sender: FDA-Public Use
  Company Number: IT-CELGENE-ITA-20190109959

PATIENT
  Age: 78 Year
  Sex: Female

DRUGS (6)
  1. REVLIMID [Suspect]
     Active Substance: LENALIDOMIDE
     Indication: Myelodysplastic syndrome
     Route: 048
     Dates: start: 20150109, end: 20170110
  2. ENOXAPARIN [Concomitant]
     Active Substance: ENOXAPARIN
     Indication: Superficial vein thrombosis
     Dosage: 8 MILLIGRAM
     Route: 065
     Dates: start: 20150127, end: 20150224
  3. ENOXAPARIN [Concomitant]
     Active Substance: ENOXAPARIN
     Indication: Thrombosis prophylaxis
     Dosage: 4 IU (INTERNATIONAL UNIT)
     Route: 065
     Dates: start: 20150225
  4. AMITRIPTYLINE HYDROCHLORIDE [Concomitant]
     Active Substance: AMITRIPTYLINE HYDROCHLORIDE
     Indication: Chronic gastritis
     Route: 065
  5. OMEPRAZOLE [Concomitant]
     Active Substance: OMEPRAZOLE
     Indication: Chronic gastritis
     Dosage: 20 MILLIGRAM
     Route: 065
  6. CLOREXIDINA [Concomitant]
     Indication: Stomatitis
     Route: 065
     Dates: start: 201609

REACTIONS (1)
  - Transformation to acute myeloid leukaemia [Fatal]

NARRATIVE: CASE EVENT DATE: 20181010
